FAERS Safety Report 4895263-2 (Version None)
Quarter: 2006Q1

REPORT INFORMATION
  Report Type: 
  Country: None (occurrence: None)
  Receive Date: 20060130
  Receipt Date: 20060116
  Transmission Date: 20060701
  Serious: Yes (Hospitalization)
  Sender: FDA-Public Use
  Company Number: FR-GLAXOSMITHKLINE-B0406530A

PATIENT
  Age: 81 Year
  Sex: Female

DRUGS (1)
  1. DEROXAT [Suspect]
     Dosage: 1UNIT PER DAY
     Route: 048
     Dates: end: 20051216

REACTIONS (8)
  - ANOREXIA NERVOSA [None]
  - ASTHENIA [None]
  - BRONCHITIS [None]
  - DEHYDRATION [None]
  - DEPRESSION [None]
  - GASTROINTESTINAL DISORDER [None]
  - GENERAL PHYSICAL HEALTH DETERIORATION [None]
  - HYPONATRAEMIA [None]
